FAERS Safety Report 7421024-6 (Version None)
Quarter: 2011Q2

REPORT INFORMATION
  Report Type: 
  Country: None (occurrence: None)
  Receive Date: 20110418
  Receipt Date: 20110405
  Transmission Date: 20111010
  Serious: Yes (Life-Threatening, Hospitalization)
  Sender: FDA-Public Use
  Company Number: FR-ROCHE-770235

PATIENT
  Sex: Female

DRUGS (3)
  1. PEGASYS [Suspect]
     Route: 042
     Dates: start: 20101025, end: 20110111
  2. COPEGUS [Suspect]
     Route: 048
     Dates: start: 20101025, end: 20110111
  3. NEORECORMON [Suspect]
     Dosage: DOSE: 30000 UI
     Route: 058
     Dates: start: 20101122, end: 20110107

REACTIONS (2)
  - CEREBRAL INFARCTION [None]
  - HEMIPLEGIA [None]
